FAERS Safety Report 14665139 (Version 1)
Quarter: 2018Q1

REPORT INFORMATION
  Report Type: Spontaneous
  Country: US (occurrence: US)
  Receive Date: 20180320
  Receipt Date: 20180320
  Transmission Date: 20180509
  Serious: Yes (Life-Threatening, Hospitalization)
  Sender: FDA-Public Use
  Company Number: None

PATIENT
  Age: 66 Year
  Sex: Female
  Weight: 103.5 kg

DRUGS (13)
  1. BACLOFEN. [Concomitant]
     Active Substance: BACLOFEN
  2. HYDROCHLOROTHIAZIDE. [Concomitant]
     Active Substance: HYDROCHLOROTHIAZIDE
  3. CALCIUM [Concomitant]
     Active Substance: CALCIUM
  4. FAMOTIDINE. [Concomitant]
     Active Substance: FAMOTIDINE
  5. RESMED C-PAP [Concomitant]
  6. LISINOPRIL/HCTZ [Suspect]
     Active Substance: HYDROCHLOROTHIAZIDE\LISINOPRIL
     Indication: HYPERTENSION
     Dosage: ?          QUANTITY:90 TABLET(S);?
     Route: 048
  7. VITIMIN D [Concomitant]
  8. MELETONIN [Concomitant]
  9. TUMERIC [Concomitant]
     Active Substance: HERBALS\TURMERIC
  10. BROBIOTIC [Concomitant]
  11. METHYLPREDNISONE [Concomitant]
     Active Substance: METHYLPREDNISOLONE
  12. IBPROFIN [Concomitant]
  13. THERA [Concomitant]

REACTIONS (3)
  - Blister [None]
  - Swelling [None]
  - Angioedema [None]

NARRATIVE: CASE EVENT DATE: 20180316
